FAERS Safety Report 22023171 (Version 5)
Quarter: 2025Q4

REPORT INFORMATION
  Report Type: Report from Study
  Country: US (occurrence: US)
  Receive Date: 20230223
  Receipt Date: 20251225
  Transmission Date: 20260117
  Serious: Yes (Other)
  Sender: ABBVIE
  Company Number: US-ABBVIE-4315205

PATIENT
  Age: 53 Year
  Sex: Female

DRUGS (4)
  1. RINVOQ [Suspect]
     Active Substance: UPADACITINIB
     Indication: Colitis ulcerative
     Dosage: FORM STRENGTH: 15 MILLIGRAM
     Route: 048
     Dates: start: 20230405, end: 2023
  2. RINVOQ [Suspect]
     Active Substance: UPADACITINIB
     Indication: Colitis ulcerative
     Dosage: FORM STRENGTH: 45 MILLIGRAM
     Route: 048
     Dates: start: 20230201, end: 2023
  3. RINVOQ [Suspect]
     Active Substance: UPADACITINIB
     Indication: Colitis ulcerative
     Dosage: FORM STRENGTH: 30 MILLIGRAM, DURATION: WENT UP TO 30 MILLIGRAM
     Route: 048
     Dates: start: 2023, end: 2023
  4. RINVOQ [Suspect]
     Active Substance: UPADACITINIB
     Indication: Colitis ulcerative
     Dosage: FORM STRENGTH: 15 MILLIGRAM
     Route: 048

REACTIONS (20)
  - Lung cancer metastatic [Not Recovered/Not Resolved]
  - Colitis ulcerative [Recovered/Resolved]
  - Blood cholesterol increased [Unknown]
  - Muscle spasms [Not Recovered/Not Resolved]
  - Eye swelling [Unknown]
  - Follicular disorder [Unknown]
  - Weight increased [Not Recovered/Not Resolved]
  - Constipation [Not Recovered/Not Resolved]
  - Asthenia [Not Recovered/Not Resolved]
  - Intervertebral disc protrusion [Not Recovered/Not Resolved]
  - Pain of skin [Unknown]
  - Hot flush [Unknown]
  - Upper limb fracture [Unknown]
  - Norovirus infection [Recovering/Resolving]
  - Fatigue [Not Recovered/Not Resolved]
  - Colitis ulcerative [Not Recovered/Not Resolved]
  - Ocular hyperaemia [Unknown]
  - Eye pain [Unknown]
  - Fall [Unknown]
  - Neoplasm [Unknown]

NARRATIVE: CASE EVENT DATE: 20230101
